FAERS Safety Report 17233087 (Version 1)
Quarter: 2020Q1

REPORT INFORMATION
  Report Type: Spontaneous
  Country: SE (occurrence: SE)
  Receive Date: 20200104
  Receipt Date: 20200104
  Transmission Date: 20200409
  Serious: Yes (Hospitalization)
  Sender: FDA-Public Use
  Company Number: SE-TEVA-2019-SE-1161001

PATIENT
  Age: 57 Year
  Sex: Female

DRUGS (3)
  1. PROPAVAN [Suspect]
     Active Substance: PROPIOMAZINE
     Dosage: 20 TABL PROPAVAN
     Route: 048
     Dates: start: 20190112, end: 20190112
  2. STESOLID 5 MG TABLETT [Suspect]
     Active Substance: DIAZEPAM
     Dosage: 40 TABLETS STESOLID
     Route: 048
     Dates: start: 20190112, end: 20190112
  3. STILNOCT 10 MG FILMDRAGERAD TABLETT [Suspect]
     Active Substance: ZOLPIDEM TARTRATE
     Dosage: 12 PCS 10 MG TABLETS, 120 MG PER TOTAL
     Route: 048
     Dates: start: 20190112, end: 20190112

REACTIONS (2)
  - Intentional overdose [Unknown]
  - Intentional self-injury [Unknown]

NARRATIVE: CASE EVENT DATE: 20190112
